FAERS Safety Report 6667768-5 (Version None)
Quarter: 2010Q1

REPORT INFORMATION
  Report Type: 
  Country: None (occurrence: None)
  Receive Date: 20100331
  Receipt Date: 20100308
  Transmission Date: 20100710
  Serious: Yes (Hospitalization, Other)
  Sender: FDA-Public Use
  Company Number: AUR-APL-2010-00715

PATIENT
  Age: 57 Year
  Sex: Female

DRUGS (2)
  1. BISOPROLOL [Suspect]
     Indication: VENTRICULAR EXTRASYSTOLES
     Dosage: 5 MG, DAILY, UNK
  2. MEFLOQUINE HCL [Suspect]
     Indication: MALARIA PROPHYLAXIS
     Dosage: 250 MG, WEEKLY, ORAL
     Route: 048

REACTIONS (5)
  - ATRIOVENTRICULAR BLOCK FIRST DEGREE [None]
  - DRUG INTERACTION [None]
  - FATIGUE [None]
  - PRESYNCOPE [None]
  - SINUS BRADYCARDIA [None]
